FAERS Safety Report 5808186-9 (Version None)
Quarter: 2008Q3

REPORT INFORMATION
  Report Type: 
  Country: None (occurrence: None)
  Receive Date: 20080709
  Receipt Date: 20080620
  Transmission Date: 20090109
  Serious: Yes (Other)
  Sender: FDA-Public Use
  Company Number: 2008017183

PATIENT
  Age: 36 Year
  Sex: Female

DRUGS (3)
  1. ZYRTEC [Suspect]
     Indication: HYPERSENSITIVITY
     Dosage: 10 MG (10 MG, 1 IN 1 D)
     Dates: start: 20050101
  2. CELEBREX [Suspect]
     Indication: JOINT INJURY
     Dosage: 100 MG (100 MG, 1 IN 1 D)
     Dates: start: 20070101
  3. ASTELIN [Suspect]
     Indication: HYPERSENSITIVITY
     Dosage: 30 ML
     Dates: start: 20050101

REACTIONS (3)
  - ANAPHYLACTIC REACTION [None]
  - DRUG INTERACTION [None]
  - PRURITUS [None]
